FAERS Safety Report 6237529-X (Version None)
Quarter: 2009Q2

REPORT INFORMATION
  Report Type: 
  Country: None (occurrence: None)
  Receive Date: 20090619
  Receipt Date: 20090608
  Transmission Date: 20091009
  Serious: Yes (Life-Threatening, Hospitalization)
  Sender: FDA-Public Use
  Company Number: RU-AMGEN-QUU350405

PATIENT
  Sex: Male

DRUGS (3)
  1. NEULASTIM [Suspect]
     Indication: PRE-EXISTING DISEASE
     Route: 030
     Dates: start: 20090526
  2. ETOPOSIDE [Concomitant]
     Route: 065
     Dates: start: 20090527, end: 20090529
  3. CISPLATIN [Concomitant]
     Route: 065
     Dates: start: 20090527, end: 20090527

REACTIONS (2)
  - DRUG INEFFECTIVE [None]
  - FEBRILE NEUTROPENIA [None]
